FAERS Safety Report 6080458-5 (Version None)
Quarter: 2009Q1

REPORT INFORMATION
  Report Type: 
  Country: None (occurrence: None)
  Receive Date: 20090217
  Receipt Date: 20090202
  Transmission Date: 20090719
  Serious: Yes (Hospitalization)
  Sender: FDA-Public Use
  Company Number: ES-AVENTIS-200911157GDDC

PATIENT
  Age: 33 Year
  Sex: Female

DRUGS (5)
  1. ARAVA [Suspect]
     Indication: ARTHRITIS
     Route: 048
     Dates: end: 20080717
  2. URBASON [Suspect]
     Indication: ARTHRITIS
     Route: 048
     Dates: end: 20080717
  3. INFLIXIMAB [Suspect]
     Indication: ARTHRITIS
     Dosage: DOSE: UNK
     Route: 042
     Dates: end: 20080708
  4. INDOMETHACIN [Concomitant]
     Dosage: DOSE: UNK
     Route: 048
  5. OMEPRAZOLE [Concomitant]
     Dosage: DOSE: UNK

REACTIONS (4)
  - DRUG INTERACTION [None]
  - PERICARDIAL EFFUSION [None]
  - PLEURAL EFFUSION [None]
  - TUBERCULOSIS [None]
